FAERS Safety Report 24343326 (Version 1)
Quarter: 2024Q3

REPORT INFORMATION
  Report Type: Report from Study
  Country: US (occurrence: US)
  Receive Date: 20240920
  Receipt Date: 20240920
  Transmission Date: 20241017
  Serious: Yes (Hospitalization)
  Sender: SERVIER
  Company Number: US-SERVIER-S24011812

PATIENT

DRUGS (3)
  1. CALASPARGASE PEGOL [Suspect]
     Active Substance: CALASPARGASE PEGOL
     Indication: Acute lymphocytic leukaemia
     Dosage: 3750 IU (2000 IU/M2), D5
     Route: 042
     Dates: start: 20240819, end: 20240819
  2. METHOTREXATE [Suspect]
     Active Substance: METHOTREXATE
     Indication: Acute lymphocytic leukaemia
     Dosage: 1000 MG/M2, D1
     Route: 042
     Dates: start: 20240815, end: 20240815
  3. CYTARABINE [Suspect]
     Active Substance: CYTARABINE
     Indication: Acute lymphocytic leukaemia
     Dosage: 3000 MG/M2, BID, D2,D3
     Route: 042
     Dates: start: 20240816, end: 20240817

REACTIONS (3)
  - Vertigo [Unknown]
  - Headache [Unknown]
  - Eyelid ptosis [Unknown]

NARRATIVE: CASE EVENT DATE: 20240911
